FAERS Safety Report 14367238 (Version 1)
Quarter: 2018Q1

REPORT INFORMATION
  Report Type: Spontaneous
  Country: US (occurrence: US)
  Receive Date: 20180109
  Receipt Date: 20180109
  Transmission Date: 20180509
  Serious: No
  Sender: FDA-Public Use
  Company Number: US-JNJFOC-20171225714

PATIENT
  Age: 21 Year
  Sex: Male
  Weight: 74.84 kg

DRUGS (2)
  1. CHILDRENS MOTRIN [Suspect]
     Active Substance: IBUPROFEN
     Route: 048
  2. CHILDRENS MOTRIN [Suspect]
     Active Substance: IBUPROFEN
     Indication: TONSILLAR INFLAMMATION
     Dosage: APPROXIMATELY 20 ML; THREE TO FOUR TIMES A DAY
     Route: 048
     Dates: start: 20171212

REACTIONS (3)
  - Product use in unapproved indication [Unknown]
  - Off label use [Unknown]
  - Drug administered to patient of inappropriate age [Unknown]
